FAERS Safety Report 6188707-X (Version None)
Quarter: 2009Q2

REPORT INFORMATION
  Report Type: 
  Country: None (occurrence: None)
  Receive Date: 20090513
  Receipt Date: 20090506
  Transmission Date: 20091009
  Serious: Yes (Other)
  Sender: FDA-Public Use
  Company Number: US-WATSON-2009-03282

PATIENT
  Sex: Male

DRUGS (2)
  1. MYSOLINE [Suspect]
     Indication: GRAND MAL CONVULSION
     Dosage: 5 TABLETS, DAILY (1 TAB TID, 2 TAB Q PM)
     Route: 048
     Dates: start: 20090201
  2. MYSOLINE [Suspect]
     Dosage: 1 TABLET, QID
     Route: 048
     Dates: start: 20020101, end: 20090201

REACTIONS (3)
  - DRUG INEFFECTIVE [None]
  - INCONTINENCE [None]
  - STUBBORNNESS [None]
